FAERS Safety Report 9506960 (Version 3)
Quarter: 2014Q3

REPORT INFORMATION
  Report Type: Spontaneous
  Country: US (occurrence: US)
  Receive Date: 20130909
  Receipt Date: 20140725
  Transmission Date: 20150326
  Serious: Yes (Hospitalization)
  Sender: FDA-Public Use
  Company Number: US-BAYER-2013-105035

PATIENT
  Age: 26 Year
  Sex: Female
  Weight: 49.89 kg

DRUGS (3)
  1. MIRENA [Suspect]
     Active Substance: LEVONORGESTREL
     Indication: CONTRACEPTION
     Dosage: UNK
  2. PRENATAL VITAMINS [Concomitant]
     Active Substance: VITAMINS
  3. MIRENA [Suspect]
     Active Substance: LEVONORGESTREL
     Indication: CONTRACEPTION
     Dosage: 20 MCG/24HR, CONT
     Route: 015
     Dates: start: 20071213, end: 20090827

REACTIONS (11)
  - Uterine perforation [None]
  - Depression [None]
  - Infection [None]
  - Off label use [None]
  - Weight decreased [None]
  - Injury [None]
  - Device dislocation [None]
  - Anxiety [None]
  - Medical device pain [None]
  - Device issue [None]
  - Pelvic pain [None]

NARRATIVE: CASE EVENT DATE: 200808
